FAERS Safety Report 9122261 (Version 2)
Quarter: 2013Q1

REPORT INFORMATION
  Report Type: Spontaneous
  Country: CA (occurrence: CA)
  Receive Date: 20130114
  Receipt Date: 20130116
  Transmission Date: 20140127
  Serious: Yes (Death)
  Sender: FDA-Public Use
  Company Number: PHHY2011CA27109

PATIENT
  Sex: Male

DRUGS (3)
  1. ACLASTA [Suspect]
     Indication: OSTEOPOROSIS
     Dosage: UNK
     Route: 042
     Dates: start: 20091214
  2. ACLASTA [Suspect]
     Dosage: UNK
     Route: 042
     Dates: start: 20110426
  3. ACLASTA [Suspect]
     Dosage: UNK
     Route: 042
     Dates: start: 20120327

REACTIONS (2)
  - Death [Fatal]
  - Blood creatinine increased [Unknown]
